FAERS Safety Report 7349978-7 (Version None)
Quarter: 2011Q1

REPORT INFORMATION
  Report Type: 
  Country: None (occurrence: None)
  Receive Date: 20110309
  Receipt Date: 20110309
  Transmission Date: 20110831
  Serious: Yes (Life-Threatening, Hospitalization)
  Sender: FDA-Public Use
  Company Number: None

PATIENT
  Age: 78 Year
  Sex: Male
  Weight: 68.0396 kg

DRUGS (2)
  1. REGLAN [Suspect]
     Indication: GASTROINTESTINAL DISORDER
     Dosage: 1 TABLET 4 TIMES A DAY PO
     Route: 048
     Dates: start: 20090710, end: 20100710
  2. REGLAN [Suspect]
     Indication: DIABETES MELLITUS
     Dosage: 1 TABLET 4 TIMES A DAY PO
     Route: 048
     Dates: start: 20090710, end: 20100710

REACTIONS (5)
  - DEPRESSED LEVEL OF CONSCIOUSNESS [None]
  - WEIGHT DECREASED [None]
  - ASTHENIA [None]
  - TREMOR [None]
  - ACTIVITIES OF DAILY LIVING IMPAIRED [None]
